FAERS Safety Report 18362505 (Version 1)
Quarter: 2020Q4

REPORT INFORMATION
  Report Type: Report from Study
  Country: US (occurrence: US)
  Receive Date: 20201008
  Receipt Date: 20201008
  Transmission Date: 20210114
  Serious: Yes (Hospitalization)
  Sender: FDA-Public Use
  Company Number: US-EISAI MEDICAL RESEARCH-EC-2020-081837

PATIENT
  Age: 66 Year
  Sex: Female
  Weight: 97 kg

DRUGS (12)
  1. LENVIMA [Suspect]
     Active Substance: LENVATINIB
     Indication: ENDOMETRIAL CANCER
     Route: 048
     Dates: start: 20200527, end: 202009
  2. FISH OIL [Concomitant]
     Active Substance: FISH OIL
  3. ACYCLOVIR. [Concomitant]
     Active Substance: ACYCLOVIR
  4. TYLENOL EXTRA STRENGTH [Concomitant]
     Active Substance: ACETAMINOPHEN
  5. KEYTRUDA [Concomitant]
     Active Substance: PEMBROLIZUMAB
  6. VITAMIN B-6 [Concomitant]
     Active Substance: PYRIDOXINE
  7. VITAMIN B12 [Concomitant]
     Active Substance: CYANOCOBALAMIN
  8. LENVIMA [Suspect]
     Active Substance: LENVATINIB
     Indication: UTERINE CANCER
     Route: 048
     Dates: start: 20200417, end: 20200429
  9. CALCIUM + VIT D [Concomitant]
     Active Substance: CALCIUM\VITAMIN D
  10. ALEVE [Concomitant]
     Active Substance: NAPROXEN SODIUM
  11. NIACIN. [Concomitant]
     Active Substance: NIACIN
  12. VESICARE [Concomitant]
     Active Substance: SOLIFENACIN SUCCINATE

REACTIONS (1)
  - Gallbladder disorder [Unknown]

NARRATIVE: CASE EVENT DATE: 202009
